FAERS Safety Report 7527495-9 (Version None)
Quarter: 2011Q2

REPORT INFORMATION
  Report Type: 
  Country: None (occurrence: None)
  Receive Date: 20110527
  Receipt Date: 20110517
  Transmission Date: 20111010
  Serious: Yes (Death)
  Sender: FDA-Public Use
  Company Number: DKLU1070638

PATIENT
  Sex: Female

DRUGS (6)
  1. SABRIL [Suspect]
     Indication: PRODUCT USED FOR UNKNOWN INDICATION
     Dosage: 10 ML MILLILITERS, 2 IN 1 D, ORAL
     Route: 048
  2. TOPAMAX [Concomitant]
  3. MIRALAX [Concomitant]
  4. MULTIVITAMKIN (VIAGRA) (CAPSULES) [Concomitant]
  5. KETOCAL (KETOPROFEN) [Concomitant]
  6. LEUCOVORIN (FOLINIC ACID) (INJECTION) [Concomitant]

REACTIONS (1)
  - DEATH [None]
